FAERS Safety Report 10113462 (Version 1)
Quarter: 2014Q2

REPORT INFORMATION
  Report Type: Spontaneous
  Country: US (occurrence: US)
  Receive Date: 20140425
  Receipt Date: 20140425
  Transmission Date: 20141212
  Serious: No
  Sender: FDA-Public Use
  Company Number: US-BAYER-2014-060389

PATIENT
  Age: 54 Year
  Sex: Female

DRUGS (3)
  1. ESTRADIOL HEMIHYDRATE (PATCH) [Suspect]
     Dosage: UNK
     Route: 062
     Dates: start: 201401
  2. ATIVAN [Concomitant]
     Indication: SLEEP DISORDER
     Dosage: UNK
  3. HYDROXYZINE [Concomitant]
     Indication: ANTIINFLAMMATORY THERAPY
     Dosage: 25 MG
     Route: 048

REACTIONS (1)
  - Application site rash [Not Recovered/Not Resolved]
